FAERS Safety Report 9932225 (Version 1)
Quarter: 2014Q1

REPORT INFORMATION
  Report Type: Spontaneous
  Country: US (occurrence: US)
  Receive Date: 20140228
  Receipt Date: 20140228
  Transmission Date: 20141002
  Serious: No
  Sender: FDA-Public Use
  Company Number: US-ABBVIE-13P-163-1159012-00

PATIENT
  Sex: Male

DRUGS (4)
  1. ANDROGEL [Suspect]
     Indication: BLOOD TESTOSTERONE DECREASED
     Dosage: UNKNOWN
  2. ANDROGEL [Suspect]
     Indication: FATIGUE
  3. ANDROGEL [Suspect]
     Indication: WEIGHT INCREASED
  4. ANDROGEL [Suspect]
     Indication: LIBIDO DECREASED

REACTIONS (3)
  - Off label use [Unknown]
  - Infertility [Unknown]
  - Azoospermia [Unknown]
